FAERS Safety Report 5143985-0 (Version None)
Quarter: 2006Q4

REPORT INFORMATION
  Report Type: 
  Country: None (occurrence: None)
  Receive Date: 20061102
  Receipt Date: 20061102
  Transmission Date: 20070319
  Serious: No
  Sender: FDA-Public Use
  Company Number: None

PATIENT
  Sex: Female
  Weight: 92.0802 kg

DRUGS (1)
  1. JANTOVEN [Suspect]
     Indication: EMBOLISM
     Dosage: 6 MG ONCE A DAY PO
     Route: 048
     Dates: start: 20061021, end: 20061023

REACTIONS (2)
  - REACTION TO DRUG EXCIPIENTS [None]
  - URTICARIA [None]
